FAERS Safety Report 10052480 (Version 2)
Quarter: 2014Q2

REPORT INFORMATION
  Report Type: Spontaneous
  Country: US (occurrence: US)
  Receive Date: 20140402
  Receipt Date: 20140418
  Transmission Date: 20141212
  Serious: Yes (Hospitalization)
  Sender: FDA-Public Use
  Company Number: US-BRISTOL-MYERS SQUIBB COMPANY-20549911

PATIENT
  Age: 63 Year
  Sex: Female
  Weight: 99.77 kg

DRUGS (17)
  1. ABILIFY [Suspect]
     Indication: DEPRESSION
  2. SYNTHROID [Concomitant]
     Indication: HYPOTHYROIDISM
  3. EFFEXOR [Concomitant]
  4. METFORMIN [Concomitant]
  5. LEVEMIR [Concomitant]
  6. NOVOLOG [Concomitant]
  7. LASIX [Concomitant]
  8. FLEXERIL [Concomitant]
     Dosage: AT NIGHT
  9. LIPITOR [Concomitant]
  10. LOPRESSOR [Concomitant]
  11. XANAX [Concomitant]
     Dosage: AT NIGHT
  12. VASOTEC [Concomitant]
  13. VITAMIN D2 [Concomitant]
  14. GLIPIZIDE [Concomitant]
  15. TRAZODONE HCL [Concomitant]
  16. PERCOCET [Concomitant]
  17. CLARITIN D [Concomitant]

REACTIONS (4)
  - Fall [Unknown]
  - Head injury [Unknown]
  - Drug dose omission [Unknown]
  - Hypothyroidism [Unknown]
